FAERS Safety Report 5444216-4 (Version None)
Quarter: 2007Q3

REPORT INFORMATION
  Report Type: 
  Country: None (occurrence: None)
  Receive Date: 20070904
  Receipt Date: 20070904
  Transmission Date: 20080115
  Serious: No
  Sender: FDA-Public Use
  Company Number: None

PATIENT
  Age: 9 Year
  Sex: Male
  Weight: 24.0406 kg

DRUGS (1)
  1. PROAIR HFA [Suspect]
     Indication: ASTHMA
     Dosage: 2 METERED DOSES 1 TIME A DAY INHAL
     Route: 055
     Dates: start: 20070607, end: 20070815

REACTIONS (1)
  - PHARMACEUTICAL PRODUCT COMPLAINT [None]
